FAERS Safety Report 5153595-7 (Version None)
Quarter: 2006Q4

REPORT INFORMATION
  Report Type: 
  Country: None (occurrence: None)
  Receive Date: 20061113
  Receipt Date: 20061026
  Transmission Date: 20070319
  Serious: Yes (Death, Hospitalization)
  Sender: FDA-Public Use
  Company Number: 229930

PATIENT
  Age: 68 Year
  Sex: Male

DRUGS (4)
  1. AVASTIN [Suspect]
     Indication: COLORECTAL CANCER METASTATIC
     Dosage: 7.5 MG/KG, Q3W, INTRAVENOUS
     Route: 042
     Dates: start: 20060630
  2. CAPECITABINE (CAPECITABINE) [Suspect]
     Indication: COLORECTAL CANCER METASTATIC
     Dosage: 1250 MG/M2, BID, ORAL
     Route: 048
     Dates: start: 20060630
  3. ATENOLOL [Concomitant]
  4. KARVEZIDE (HYDROCHLOROTHIAZIDE, IRBESARTAN) [Concomitant]

REACTIONS (4)
  - BLOOD BILIRUBIN INCREASED [None]
  - INTESTINAL OBSTRUCTION [None]
  - NEUROPATHY [None]
  - SEPSIS [None]
